FAERS Safety Report 6021361-6 (Version None)
Quarter: 2008Q4

REPORT INFORMATION
  Report Type: 
  Country: None (occurrence: None)
  Receive Date: 20081229
  Receipt Date: 20081217
  Transmission Date: 20090506
  Serious: Yes (Hospitalization)
  Sender: FDA-Public Use
  Company Number: B0543009A

PATIENT
  Age: 32 Year
  Sex: Female

DRUGS (11)
  1. LAMICTAL [Suspect]
     Indication: EPILEPSY
     Route: 065
     Dates: start: 20070101
  2. URBANYL [Suspect]
     Indication: DRUG USE FOR UNKNOWN INDICATION
     Route: 065
     Dates: start: 20080507, end: 20080529
  3. PYOSTACINE [Suspect]
     Indication: SUPERINFECTION
     Route: 065
     Dates: start: 20080519, end: 20080520
  4. CEPOREXINE [Concomitant]
     Indication: DRUG USE FOR UNKNOWN INDICATION
     Route: 065
     Dates: end: 20080529
  5. FLAGYL [Concomitant]
     Indication: DRUG USE FOR UNKNOWN INDICATION
     Route: 065
     Dates: end: 20080529
  6. METICILLIN SODIUM [Concomitant]
     Indication: DRUG USE FOR UNKNOWN INDICATION
     Route: 065
     Dates: end: 20080529
  7. PHENOBARBITAL TAB [Concomitant]
     Indication: DRUG USE FOR UNKNOWN INDICATION
     Route: 065
  8. ZYVOXID [Concomitant]
     Indication: ERYTHEMA
     Route: 065
     Dates: start: 20080523, end: 20080527
  9. KEFORAL [Concomitant]
     Indication: ERYTHEMA
     Dates: start: 20080527, end: 20080529
  10. TAVANIC [Concomitant]
     Indication: ERYTHEMA
     Route: 065
     Dates: start: 20080527, end: 20080529
  11. TRIFLUCAN [Concomitant]
     Indication: CANDIDIASIS
     Dates: start: 20080515, end: 20080520

REACTIONS (14)
  - ACUTE GENERALISED EXANTHEMATOUS PUSTULOSIS [None]
  - CHILLS [None]
  - DERMATITIS EXFOLIATIVE [None]
  - ECZEMA [None]
  - EPILEPSY [None]
  - FACE OEDEMA [None]
  - GENERAL PHYSICAL HEALTH DETERIORATION [None]
  - HEPATOCELLULAR INJURY [None]
  - HYPERTHERMIA [None]
  - LEUKOCYTOSIS [None]
  - OEDEMA PERIPHERAL [None]
  - SKIN MACERATION [None]
  - TACHYCARDIA [None]
  - TOXIC SKIN ERUPTION [None]
